FAERS Safety Report 10192259 (Version 2)
Quarter: 2014Q3

REPORT INFORMATION
  Report Type: Spontaneous
  Country: CA (occurrence: CA)
  Receive Date: 20140523
  Receipt Date: 20140709
  Transmission Date: 20150326
  Serious: Yes (Other)
  Sender: FDA-Public Use
  Company Number: CHPA2014CA006947

PATIENT
  Sex: Female

DRUGS (2)
  1. OTRIVIN COMPLETE NASAL CARE [Suspect]
     Active Substance: XYLOMETAZOLINE HYDROCHLORIDE
     Dosage: UNK, BID
     Route: 045
  2. OTRIVIN COMPLETE NASAL CARE [Suspect]
     Active Substance: XYLOMETAZOLINE HYDROCHLORIDE
     Indication: HYPERSENSITIVITY
     Dosage: UNK, BID
     Route: 045

REACTIONS (5)
  - Device ineffective [None]
  - Neoplasm malignant [Not Recovered/Not Resolved]
  - Inappropriate schedule of drug administration [Unknown]
  - Product quality issue [None]
  - Incorrect drug administration duration [Unknown]
